FAERS Safety Report 24969031 (Version 2)
Quarter: 2025Q4

REPORT INFORMATION
  Report Type: Report from Study
  Country: US (occurrence: US)
  Receive Date: 20250214
  Receipt Date: 20251218
  Transmission Date: 20260117
  Serious: Yes (Hospitalization, Other)
  Sender: AMNEAL
  Company Number: US-AMNEAL PHARMACEUTICALS-2024-AMRX-04592

PATIENT
  Age: 76 Year
  Sex: Female
  Weight: 54.422 kg

DRUGS (10)
  1. CARBIDOPA\LEVODOPA [Suspect]
     Active Substance: CARBIDOPA\LEVODOPA
     Indication: Parkinson^s disease
     Dosage: 36.25 MG-145 MG, 02 CAPSULES, EVERY NIGHT
     Route: 048
  2. CARBIDOPA\LEVODOPA [Suspect]
     Active Substance: CARBIDOPA\LEVODOPA
     Dosage: 36.25 MG-145 MG, 02 CAPSULES, 05 TIMES A DAY
     Route: 048
     Dates: start: 20231204
  3. CARBIDOPA\LEVODOPA [Suspect]
     Active Substance: CARBIDOPA\LEVODOPA
     Dosage: 36.25 MG-145 MG, 2 CAPSULES, QID
     Route: 048
  4. CARBIDOPA\LEVODOPA [Suspect]
     Active Substance: CARBIDOPA\LEVODOPA
     Dosage: 36.25 MG-145 MG, 2 CAPSULES, 5 /DAY
     Route: 048
  5. CARBIDOPA\LEVODOPA [Suspect]
     Active Substance: CARBIDOPA\LEVODOPA
     Dosage: 36.25 MG-145 MG, 02 CAPSULES, TID
     Route: 048
     Dates: start: 20240304
  6. CARBIDOPA\LEVODOPA [Suspect]
     Active Substance: CARBIDOPA\LEVODOPA
     Dosage: 36.25 MG-145 MG, 02 CAPSULES, 5 /DAY, MAX 10 CAPSULES PER DAY
     Route: 048
  7. CARBIDOPA\LEVODOPA [Suspect]
     Active Substance: CARBIDOPA\LEVODOPA
     Dosage: 36.25 MG-145 MG, 02 CAPSULES, FOUR TIMES A DAY
     Route: 048
     Dates: start: 20240403
  8. CARBIDOPA\LEVODOPA [Suspect]
     Active Substance: CARBIDOPA\LEVODOPA
     Dosage: 36.25 MG-145 MG, 2 CAPSULES, 5 /DAY
     Route: 048
     Dates: start: 20250423
  9. MODAFINIL [Concomitant]
     Active Substance: MODAFINIL
     Indication: Product used for unknown indication
     Dosage: 100 MG 01 PILL A DAY
     Route: 048
  10. METHOTREXATE [Concomitant]
     Active Substance: METHOTREXATE
     Indication: Rheumatoid arthritis
     Dosage: 01 PILL ONCE A WEEK
     Route: 048

REACTIONS (4)
  - Fall [Unknown]
  - Pneumonia [Unknown]
  - Tremor [Not Recovered/Not Resolved]
  - Fatigue [Not Recovered/Not Resolved]

NARRATIVE: CASE EVENT DATE: 20251210
